FAERS Safety Report 9727066 (Version 2)
Quarter: 2014Q1

REPORT INFORMATION
  Report Type: Spontaneous
  Country: US (occurrence: US)
  Receive Date: 20131203
  Receipt Date: 20140325
  Transmission Date: 20141002
  Serious: Yes (Hospitalization)
  Sender: FDA-Public Use
  Company Number: US-BAYER-2013-144774

PATIENT
  Age: 22 Year
  Sex: Female
  Weight: 86.17 kg

DRUGS (1)
  1. OCELLA [Suspect]
     Dosage: UNK
     Dates: start: 201107

REACTIONS (9)
  - Cerebral thrombosis [None]
  - Thrombosis [None]
  - Blindness [None]
  - Craniocerebral injury [None]
  - Injury [None]
  - Pain [None]
  - Pain [None]
  - General physical health deterioration [None]
  - Headache [None]
